FAERS Safety Report 5960957-4 (Version None)
Quarter: 2008Q4

REPORT INFORMATION
  Report Type: 
  Country: None (occurrence: None)
  Receive Date: 20081119
  Receipt Date: 20071024
  Transmission Date: 20090506
  Serious: Yes (Hospitalization, Other)
  Sender: FDA-Public Use
  Company Number: GXBR2007US02031

PATIENT
  Sex: Male

DRUGS (2)
  1. AMIODARONE HCL [Suspect]
     Indication: TACHYCARDIA FOETAL
     Dosage: MATERNAL DOSE: 600MG BID; TRANSPLACENTAL, MATERNAL DOSE: 800 BID, TRANSPLACENTAL
     Route: 064
     Dates: start: 20011027, end: 20011030
  2. AMIODARONE HCL [Suspect]
     Indication: TACHYCARDIA FOETAL
     Dosage: MATERNAL DOSE: 600MG BID; TRANSPLACENTAL, MATERNAL DOSE: 800 BID, TRANSPLACENTAL
     Route: 064
     Dates: start: 20011031, end: 20011114

REACTIONS (13)
  - ABNORMAL BEHAVIOUR [None]
  - AGGRESSION [None]
  - AUTISM SPECTRUM DISORDER [None]
  - COMMUNICATION DISORDER [None]
  - DEVELOPMENTAL DELAY [None]
  - HYPOTHYROIDISM [None]
  - HYPOTONIA [None]
  - MATERNAL DRUGS AFFECTING FOETUS [None]
  - NEONATAL DISORDER [None]
  - PREMATURE BABY [None]
  - PSYCHOMOTOR SKILLS IMPAIRED [None]
  - SPEECH DISORDER DEVELOPMENTAL [None]
  - SUPRAVENTRICULAR TACHYCARDIA [None]
